FAERS Safety Report 9082311 (Version 3)
Quarter: 2013Q1

REPORT INFORMATION
  Report Type: Spontaneous
  Country: US (occurrence: US)
  Receive Date: 20130218
  Receipt Date: 20130313
  Transmission Date: 20140127
  Serious: No
  Sender: FDA-Public Use
  Company Number: US-PFIZER INC-2013061677

PATIENT
  Age: 40 Year
  Sex: Male
  Weight: 129 kg

DRUGS (4)
  1. CHANTIX [Suspect]
     Indication: SMOKING CESSATION THERAPY
     Dosage: 0.5 MG, DAILY
     Dates: start: 2010
  2. CHANTIX [Suspect]
     Dosage: 1 MG, 2X/DAY
  3. CHANTIX [Suspect]
     Dosage: 0.5 MG, DAILY
     Dates: start: 201301, end: 2013
  4. CHANTIX [Suspect]
     Dosage: 1 MG, 2X/DAY
     Dates: start: 2013, end: 20130214

REACTIONS (3)
  - Drug ineffective [Unknown]
  - Vomiting [Unknown]
  - Abdominal pain upper [Unknown]
